FAERS Safety Report 9799639 (Version 2)
Quarter: 2014Q2

REPORT INFORMATION
  Report Type: Spontaneous
  Country: GB (occurrence: GB)
  Receive Date: 20140106
  Receipt Date: 20140519
  Transmission Date: 20141212
  Serious: Yes (Other)
  Sender: FDA-Public Use
  Company Number: GB-PFIZER INC-2014001662

PATIENT
  Sex: 0

DRUGS (1)
  1. SERTRALINE HCL [Suspect]
     Indication: DEPRESSION
     Dosage: 50 MG, UNK
     Route: 064
     Dates: start: 20010101

REACTIONS (3)
  - Maternal exposure timing unspecified [Unknown]
  - Small for dates baby [Unknown]
  - Foetal placental thrombosis [Unknown]
